FAERS Safety Report 20949590 (Version 1)
Quarter: 2022Q2

REPORT INFORMATION
  Report Type: Spontaneous
  Country: RU (occurrence: RU)
  Receive Date: 20220613
  Receipt Date: 20220613
  Transmission Date: 20220720
  Serious: Yes (Other)
  Sender: FDA-Public Use
  Company Number: RU-NOVARTISPH-NVSC2022RU130229

PATIENT
  Age: 17 Year
  Sex: Female

DRUGS (1)
  1. ERELZI [Suspect]
     Active Substance: ETANERCEPT-SZZS
     Indication: Juvenile idiopathic arthritis
     Dosage: 50 MICROMOLE PER MILLIGRAM (SINGLE DOSE, 50 WEEKS, FOR 3 MONTHS)
     Route: 048
     Dates: start: 20220331, end: 20220525

REACTIONS (2)
  - Alopecia [Not Recovered/Not Resolved]
  - Vomiting projectile [Not Recovered/Not Resolved]

NARRATIVE: CASE EVENT DATE: 20220331
